FAERS Safety Report 17805594 (Version 1)
Quarter: 2020Q2

REPORT INFORMATION
  Report Type: Spontaneous
  Country: CA (occurrence: CA)
  Receive Date: 20200520
  Receipt Date: 20200520
  Transmission Date: 20200714
  Serious: Yes (Death, Hospitalization, Disabling, Other)
  Sender: FDA-Public Use
  Company Number: CA-AUROBINDO-AUR-APL-2020-025065

PATIENT
  Age: 63 Year
  Sex: Female
  Weight: 63 kg

DRUGS (10)
  1. NEUPOGEN [Concomitant]
     Active Substance: FILGRASTIM
     Indication: NEUTROPENIA
     Dosage: UNK
     Route: 065
  2. ACETYLSALICYLIC ACID [Concomitant]
     Active Substance: ASPIRIN
     Indication: THROMBOSIS PROPHYLAXIS
     Dosage: UNK
     Route: 065
  3. BUSULFEX [Suspect]
     Active Substance: BUSULFAN
     Indication: STEM CELL TRANSPLANT
     Dosage: 197.0 MILLIGRAM, ONCE A DAY
     Route: 042
  4. CALCIUM CARBONATE/VITAMIN D3 [Concomitant]
     Active Substance: CALCIUM CARBONATE\CHOLECALCIFEROL
     Indication: SUPPORTIVE CARE
     Dosage: UNK
     Route: 065
  5. PANTOLOC [Concomitant]
     Active Substance: PANTOPRAZOLE SODIUM
     Indication: PROPHYLAXIS
     Dosage: UNK
     Route: 065
  6. MELPHALAN. [Suspect]
     Active Substance: MELPHALAN
     Indication: STEM CELL TRANSPLANT
     Dosage: 238.0 MILLIGRAM, ONCE A DAY
     Route: 042
  7. SYNTHROID [Concomitant]
     Active Substance: LEVOTHYROXINE SODIUM
     Indication: HYPOTHYROIDISM
     Dosage: UNK
     Route: 065
  8. LENALIDOMIDE [Suspect]
     Active Substance: LENALIDOMIDE
     Indication: STEM CELL TRANSPLANT
     Dosage: 5.0 MILLIGRAM, ONCE A DAY
     Route: 048
  9. K-DUR [Concomitant]
     Active Substance: POTASSIUM CHLORIDE
     Indication: HYPOKALAEMIA
     Dosage: UNK
     Route: 065
  10. LIPOSIC [Concomitant]
     Active Substance: CARBOMER
     Indication: DRY EYE
     Dosage: UNK
     Route: 065

REACTIONS (2)
  - Second primary malignancy [Fatal]
  - Hepatic enzyme increased [Fatal]
